FAERS Safety Report 26106841 (Version 2)
Quarter: 2025Q4

REPORT INFORMATION
  Report Type: Spontaneous
  Country: SG (occurrence: SG)
  Receive Date: 20251201
  Receipt Date: 20251217
  Transmission Date: 20260118
  Serious: Yes (Hospitalization)
  Sender: ROCHE
  Company Number: SG-ROCHE-10000441582

PATIENT
  Age: 52 Year
  Sex: Female

DRUGS (1)
  1. KADCYLA [Suspect]
     Active Substance: ADO-TRASTUZUMAB EMTANSINE
     Indication: Breast cancer

REACTIONS (7)
  - Malaise [Unknown]
  - Abdominal pain upper [Unknown]
  - Abdominal pain [Unknown]
  - Chills [Unknown]
  - Pyrexia [Unknown]
  - Asthenia [Unknown]
  - Hypoaesthesia [Unknown]
